FAERS Safety Report 8107571 (Version 2)
Quarter: 2013Q1

REPORT INFORMATION
  Report Type: Spontaneous
  Country: US (occurrence: US)
  Receive Date: 20110825
  Receipt Date: 20130201
  Transmission Date: 20140127
  Serious: Yes (Hospitalization)
  Sender: FDA-Public Use
  Company Number: US-ASTRAZENECA-2011SE47747

PATIENT
  Age: 49 Year
  Sex: Female

DRUGS (4)
  1. SYMBICORT PMDI [Suspect]
     Route: 055
  2. TOPROL XL [Suspect]
     Route: 048
  3. TOPROL XL [Suspect]
     Dosage: GENERIC
     Route: 048
  4. METOPROLOL TARTRATE [Concomitant]

REACTIONS (5)
  - Migraine [Unknown]
  - Limb discomfort [Unknown]
  - Fear [Unknown]
  - Nervousness [Unknown]
  - Drug dose omission [Unknown]
